FAERS Safety Report 15445365 (Version 1)
Quarter: 2018Q3

REPORT INFORMATION
  Report Type: Spontaneous
  Country: AU (occurrence: AU)
  Receive Date: 20180928
  Receipt Date: 20180928
  Transmission Date: 20181010
  Serious: Yes (Disabling)
  Sender: FDA-Public Use
  Company Number: AU-009507513-1809AUS012863

PATIENT
  Age: 22 Year
  Sex: Female

DRUGS (1)
  1. NOVASONE [Suspect]
     Active Substance: MOMETASONE FUROATE
     Indication: ECZEMA
     Dosage: APPLICATION WEEKLY
     Route: 061
     Dates: start: 20150103, end: 20170606

REACTIONS (1)
  - Steroid withdrawal syndrome [Recovering/Resolving]

NARRATIVE: CASE EVENT DATE: 20170606
